FAERS Safety Report 9699705 (Version 1)
Quarter: 2013Q4

REPORT INFORMATION
  Report Type: Spontaneous
  Country: US (occurrence: US)
  Receive Date: 20131120
  Receipt Date: 20131120
  Transmission Date: 20140711
  Serious: Yes (Other)
  Sender: FDA-Public Use
  Company Number: US-RB-060746-13

PATIENT
  Age: 0 None
  Sex: Female
  Weight: 3.1 kg

DRUGS (2)
  1. SUBOXONE FILM [Suspect]
     Indication: DRUG DEPENDENCE
     Dosage: SUBOXONE FILM
     Route: 064
     Dates: start: 201112, end: 20120713
  2. NICOTINE [Suspect]
     Indication: NICOTINE DEPENDENCE
     Dosage: 5-8 CIGARETTES DAILY
     Route: 064
     Dates: start: 201110, end: 20120713

REACTIONS (3)
  - Foetal exposure during pregnancy [Recovered/Resolved]
  - Diarrhoea neonatal [Recovered/Resolved]
  - Neonatal tachypnoea [Recovered/Resolved]
